FAERS Safety Report 8231296-6 (Version None)
Quarter: 2012Q1

REPORT INFORMATION
  Report Type: 
  Country: None (occurrence: None)
  Receive Date: 20120323
  Receipt Date: 20120319
  Transmission Date: 20120608
  Serious: Yes (Death, Life-Threatening, Hospitalization, Other)
  Sender: FDA-Public Use
  Company Number: FR-PFIZER INC-2012070505

PATIENT
  Age: 63 Year
  Sex: Male

DRUGS (3)
  1. SOLU-MEDROL [Suspect]
     Dosage: 100 MG, 1X/DAY
     Route: 042
     Dates: start: 20110607
  2. CYCLOPHOSPHAMIDE [Suspect]
     Dosage: UNK
     Route: 042
     Dates: start: 20110607, end: 20110607
  3. SOLU-MEDROL [Suspect]
     Dosage: 1 G, 1X/DAY
     Route: 042
     Dates: start: 20110603, end: 20110606

REACTIONS (12)
  - CEREBRAL ISCHAEMIA [None]
  - ACUTE RESPIRATORY FAILURE [None]
  - ENCEPHALITIS FUNGAL [None]
  - SHOCK [None]
  - BRAIN HERNIATION [None]
  - AGITATION [None]
  - BONE MARROW FAILURE [None]
  - ZYGOMYCOSIS [None]
  - HISTIOCYTOSIS HAEMATOPHAGIC [None]
  - SUBENDOCARDIAL ISCHAEMIA [None]
  - BRAIN OEDEMA [None]
  - ATRIAL FIBRILLATION [None]
